FAERS Safety Report 6494419-5 (Version None)
Quarter: 2009Q4

REPORT INFORMATION
  Report Type: 
  Country: None (occurrence: None)
  Receive Date: 20091214
  Receipt Date: 20090217
  Transmission Date: 20100525
  Serious: No
  Sender: FDA-Public Use
  Company Number: US-BRISTOL-MYERS SQUIBB COMPANY-14509434

PATIENT
  Age: 35 Year
  Sex: Male
  Weight: 113 kg

DRUGS (4)
  1. ABILIFY [Suspect]
     Indication: BIPOLAR DISORDER
  2. DEPAKOTE [Concomitant]
  3. TRAZODONE HCL [Concomitant]
  4. CELEXA [Concomitant]

REACTIONS (7)
  - ANTISOCIAL BEHAVIOUR [None]
  - DIZZINESS [None]
  - DRY MOUTH [None]
  - FOOD CRAVING [None]
  - INSOMNIA [None]
  - PAIN [None]
  - WEIGHT INCREASED [None]
